FAERS Safety Report 12228188 (Version 2)
Quarter: 2016Q3

REPORT INFORMATION
  Report Type: Spontaneous
  Country: FR (occurrence: FR)
  Receive Date: 20160401
  Receipt Date: 20160701
  Transmission Date: 20161109
  Serious: Yes (Hospitalization)
  Sender: FDA-Public Use
  Company Number: FR-ASTRAZENECA-2016SE33893

PATIENT
  Age: 32089 Day
  Sex: Male
  Weight: 74 kg

DRUGS (10)
  1. GENTAMYCIN [Concomitant]
     Active Substance: GENTAMICIN
     Dates: start: 20160204, end: 20160209
  2. DAPTOMYCINE [Concomitant]
     Active Substance: DAPTOMYCIN
     Dates: start: 20160204, end: 20160206
  3. RIMACTAN [Concomitant]
     Active Substance: RIFAMPIN
     Indication: OSTEOMYELITIS
     Route: 048
     Dates: start: 20160212, end: 20160215
  4. ZYVOXID [Concomitant]
     Active Substance: LINEZOLID
     Indication: OSTEOMYELITIS
     Route: 048
     Dates: start: 20160303, end: 20160307
  5. TAZOCILLINE [Concomitant]
     Active Substance: PIPERACILLIN SODIUM\TAZOBACTAM SODIUM
     Dates: start: 20160204, end: 20160206
  6. RIMACTAN [Concomitant]
     Active Substance: RIFAMPIN
     Indication: OSTEOMYELITIS
     Route: 048
     Dates: start: 20160303
  7. LEVOFLOXACINE ARROW [Concomitant]
     Active Substance: LEVOFLOXACIN
     Indication: OSTEOMYELITIS
     Route: 048
     Dates: start: 20160212, end: 20160302
  8. MIANSERINE ARROW [Concomitant]
     Active Substance: MIANSERIN HYDROCHLORIDE
     Route: 048
     Dates: start: 20160304, end: 20160307
  9. INEXIUM [Suspect]
     Active Substance: ESOMEPRAZOLE
     Indication: GASTROOESOPHAGEAL REFLUX DISEASE
     Route: 048
     Dates: start: 20160204, end: 20160307
  10. ORBENINE [Concomitant]
     Active Substance: CLOXACILLIN SODIUM
     Dates: start: 20160208, end: 20160214

REACTIONS (3)
  - Toxic skin eruption [Unknown]
  - Eosinophilia [Recovering/Resolving]
  - Rash maculo-papular [Recovered/Resolved]

NARRATIVE: CASE EVENT DATE: 20160206
